FAERS Safety Report 6543122-1 (Version None)
Quarter: 2010Q1

REPORT INFORMATION
  Report Type: 
  Country: None (occurrence: None)
  Receive Date: 20100120
  Receipt Date: 20100114
  Transmission Date: 20100710
  Serious: Yes (Hospitalization)
  Sender: FDA-Public Use
  Company Number: PHHY2009FI57457

PATIENT
  Age: 78 Year
  Sex: Male

DRUGS (8)
  1. STALEVO 100 [Suspect]
     Dosage: 200/150/37.5 MG ON TABLET THREE TIMES DAILY
     Route: 048
  2. SINEMET [Concomitant]
     Dosage: 100/25 MG ONE TABLET THRICE DAILY
     Route: 048
  3. SIFROL [Concomitant]
     Dosage: 0.7 MG ONE TABLET THRICE DAILY
     Route: 048
  4. SOMAC [Concomitant]
     Dosage: 40 MG ONE TABLET DAILY
     Route: 048
  5. HYDREX [Concomitant]
     Dosage: 25 MG ONE TABLET DAILY
     Route: 048
  6. MAREVAN [Concomitant]
     Route: 048
  7. RADIOTHERAPY [Concomitant]
  8. DEGARELIX [Concomitant]

REACTIONS (6)
  - GENERAL PHYSICAL HEALTH DETERIORATION [None]
  - METASTASES TO BONE [None]
  - PROSTATE CANCER METASTATIC [None]
  - PROSTATIC SPECIFIC ANTIGEN INCREASED [None]
  - PYREXIA [None]
  - URINARY TRACT INFECTION [None]
